FAERS Safety Report 24315057 (Version 2)
Quarter: 2024Q3

REPORT INFORMATION
  Report Type: Spontaneous
  Country: US (occurrence: US)
  Receive Date: 20240913
  Receipt Date: 20240916
  Transmission Date: 20241017
  Serious: Yes (Hospitalization, Other)
  Sender: SANDOZ
  Company Number: US-SANDOZ-SDZ2024US079070

PATIENT
  Sex: Female
  Weight: 48.53 kg

DRUGS (2)
  1. COMBIPATCH [Suspect]
     Active Substance: ESTRADIOL\NORETHINDRONE ACETATE
     Indication: Osteoporosis
     Dosage: 0.05/0.25 MG, TWICE WEEKLY
     Route: 062
  2. LEVOTHYROXINE [Concomitant]
     Active Substance: LEVOTHYROXINE\LEVOTHYROXINE SODIUM
     Indication: Hypothyroidism
     Dosage: 50 UG, QD
     Route: 065

REACTIONS (17)
  - Knee arthroplasty [Recovered/Resolved]
  - Large intestine perforation [Recovered/Resolved]
  - Peritoneal abscess [Recovered/Resolved]
  - Sepsis [Recovered/Resolved]
  - Gastric cancer [Not Recovered/Not Resolved]
  - Gastrointestinal carcinoma [Not Recovered/Not Resolved]
  - Scar [Not Recovered/Not Resolved]
  - Back pain [Recovered/Resolved]
  - Influenza [Recovered/Resolved]
  - Arterial occlusive disease [Recovered/Resolved]
  - Skin ulcer [Recovered/Resolved]
  - Uterine polyp [Recovered/Resolved]
  - Endometrial thickening [Recovered/Resolved]
  - Back injury [Recovered/Resolved]
  - Weight decreased [Recovered/Resolved]
  - Vaginal haemorrhage [Recovered/Resolved]
  - Off label use [Not Recovered/Not Resolved]

NARRATIVE: CASE EVENT DATE: 20200101
